FAERS Safety Report 25464639 (Version 2)
Quarter: 2025Q2

REPORT INFORMATION
  Report Type: Spontaneous
  Country: CH (occurrence: CH)
  Receive Date: 20250621
  Receipt Date: 20250625
  Transmission Date: 20250717
  Serious: Yes (Death, Other)
  Sender: ALEXION PHARMACEUTICALS
  Company Number: CH-ASTRAZENECA-202506EEA017176CH

PATIENT
  Weight: 60 kg

DRUGS (1)
  1. ULTOMIRIS [Suspect]
     Active Substance: RAVULIZUMAB-CWVZ
     Dosage: 3300 MILLIGRAM, Q8W (60 DAYS BETWEEN ADMINISTRATION)

REACTIONS (3)
  - Septic shock [Fatal]
  - Nephrolithiasis [Unknown]
  - Urinary tract infection [Unknown]
